FAERS Safety Report 10347728 (Version 2)
Quarter: 2014Q4

REPORT INFORMATION
  Report Type: Spontaneous
  Country: US (occurrence: US)
  Receive Date: 20140729
  Receipt Date: 20141014
  Transmission Date: 20150528
  Serious: No
  Sender: FDA-Public Use
  Company Number: US-009507513-1407USA012804

PATIENT
  Sex: Female

DRUGS (2)
  1. JANUVIA [Suspect]
     Active Substance: SITAGLIPTIN PHOSPHATE
     Indication: DIABETES MELLITUS
     Dosage: 100 MG/NA
     Route: 048
     Dates: start: 20140721, end: 20140725
  2. DIGOXIN. [Suspect]
     Active Substance: DIGOXIN
     Dosage: UNK

REACTIONS (2)
  - Nightmare [Unknown]
  - Drug interaction [Unknown]

NARRATIVE: CASE EVENT DATE: 20140724
